FAERS Safety Report 18648664 (Version 1)
Quarter: 2020Q4

REPORT INFORMATION
  Report Type: Spontaneous
  Country: US (occurrence: US)
  Receive Date: 20201222
  Receipt Date: 20201222
  Transmission Date: 20210114
  Serious: Yes (Death, Hospitalization)
  Sender: FDA-Public Use
  Company Number: None

PATIENT
  Age: 1 Year
  Sex: Female
  Weight: 11.2 kg

DRUGS (2)
  1. CYCLOPHOSPHAMIDE. [Suspect]
     Active Substance: CYCLOPHOSPHAMIDE
     Dates: end: 20201219
  2. TOPOTECAN [Suspect]
     Active Substance: TOPOTECAN HYDROCHLORIDE
     Dates: end: 20201219

REACTIONS (7)
  - Cardio-respiratory arrest [None]
  - Acidosis [None]
  - Pulmonary haemorrhage [None]
  - Respiratory distress [None]
  - Hypocalcaemia [None]
  - Fluid overload [None]
  - Bradycardia [None]

NARRATIVE: CASE EVENT DATE: 20201220
